FAERS Safety Report 25423538 (Version 2)
Quarter: 2025Q3

REPORT INFORMATION
  Report Type: Report from Study
  Country: GB (occurrence: GB)
  Receive Date: 20250611
  Receipt Date: 20250724
  Transmission Date: 20251021
  Serious: Yes (Other)
  Sender: NOVARTIS
  Company Number: GB-002147023-NVSC2024GB132853

PATIENT
  Age: 53 Year
  Sex: Female

DRUGS (5)
  1. MAYZENT [Suspect]
     Active Substance: SIPONIMOD
     Indication: Multiple sclerosis
     Dosage: 0.25 MG, QD
     Route: 048
     Dates: start: 20240625, end: 20241114
  2. MAYZENT [Suspect]
     Active Substance: SIPONIMOD
     Indication: Secondary progressive multiple sclerosis
     Dosage: 2 MG, QD
     Route: 048
  3. MAYZENT [Suspect]
     Active Substance: SIPONIMOD
     Route: 065
  4. MAYZENT [Suspect]
     Active Substance: SIPONIMOD
     Dosage: 2 MG, QD
     Route: 048
  5. COLCHICINE [Concomitant]
     Active Substance: COLCHICINE
     Indication: Product used for unknown indication
     Route: 065

REACTIONS (16)
  - Lower respiratory tract infection [Recovering/Resolving]
  - Palpitations [Recovered/Resolved]
  - Vomiting [Recovered/Resolved]
  - Hypotension [Recovered/Resolved]
  - Gout [Unknown]
  - Joint swelling [Not Recovered/Not Resolved]
  - Cardiac disorder [Unknown]
  - Hypertension [Not Recovered/Not Resolved]
  - Dizziness [Unknown]
  - Fatigue [Unknown]
  - Infected cyst [Recovering/Resolving]
  - Gingivitis [Recovering/Resolving]
  - Infection [Unknown]
  - Supraventricular tachycardia [Recovered/Resolved]
  - Liver function test increased [Unknown]
  - Electrocardiogram abnormal [Unknown]

NARRATIVE: CASE EVENT DATE: 20240701
